FAERS Safety Report 4990215-6 (Version None)
Quarter: 2006Q2

REPORT INFORMATION
  Report Type: 
  Country: None (occurrence: None)
  Receive Date: 20060501
  Receipt Date: 20060501
  Transmission Date: 20061013
  Serious: Yes (Other)
  Sender: FDA-Public Use
  Company Number: None

PATIENT
  Age: 54 Year
  Sex: Female
  Weight: 98.4306 kg

DRUGS (1)
  1. OMACOR [Suspect]
     Indication: HYPERTRIGLYCERIDAEMIA
     Dosage: 1 GRAM   FOUR TIMES DAILY   PO
     Route: 048
     Dates: start: 20060323, end: 20060414

REACTIONS (1)
  - PRURITUS [None]
